FAERS Safety Report 14692342 (Version 1)
Quarter: 2018Q1

REPORT INFORMATION
  Report Type: Spontaneous
  Country: FR (occurrence: FR)
  Receive Date: 20180329
  Receipt Date: 20180329
  Transmission Date: 20180509
  Serious: Yes (Other)
  Sender: FDA-Public Use
  Company Number: FR-MERCK KGAA-2044737

PATIENT
  Age: 57 Year
  Sex: Female

DRUGS (1)
  1. NOVOTHYROX [Suspect]
     Active Substance: LEVOTHYROXINE SODIUM
     Indication: THYROIDECTOMY

REACTIONS (17)
  - Gastrointestinal disorder [None]
  - Fatigue [None]
  - Blood thyroid stimulating hormone decreased [None]
  - Insomnia [None]
  - Mobility decreased [None]
  - Dyspepsia [None]
  - Gastrooesophageal reflux disease [None]
  - Asthenia [None]
  - Loss of personal independence in daily activities [None]
  - Migraine [None]
  - Vertigo [None]
  - Depression [None]
  - Arthralgia [None]
  - Myalgia [None]
  - Loss of libido [None]
  - Muscle spasms [None]
  - Intestinal transit time abnormal [None]

NARRATIVE: CASE EVENT DATE: 201703
